FAERS Safety Report 19495542 (Version 2)
Quarter: 2021Q3

REPORT INFORMATION
  Report Type: Report from Study
  Country: HN (occurrence: HN)
  Receive Date: 20210706
  Receipt Date: 20210830
  Transmission Date: 20211014
  Serious: Yes (Other)
  Sender: FDA-Public Use
  Company Number: NVSC2021HN077494

PATIENT
  Age: 37 Year
  Sex: Female

DRUGS (4)
  1. SECUKINUMAB. [Suspect]
     Active Substance: SECUKINUMAB
     Indication: PSORIASIS
     Dosage: 300 MG, QMO
     Route: 058
     Dates: start: 20190113
  2. SECUKINUMAB. [Suspect]
     Active Substance: SECUKINUMAB
     Indication: PSORIATIC ARTHROPATHY
     Dosage: 300 MG, QMO
     Route: 058
  3. SECUKINUMAB. [Suspect]
     Active Substance: SECUKINUMAB
     Dosage: 300 MG, QMO
     Route: 058
     Dates: start: 20191217
  4. SECUKINUMAB. [Suspect]
     Active Substance: SECUKINUMAB
     Dosage: 300 MG, QMO
     Route: 058
     Dates: start: 20200613

REACTIONS (33)
  - Hepatitis [Recovering/Resolving]
  - Immune system disorder [Unknown]
  - Headache [Unknown]
  - Arthritis [Unknown]
  - Feeling abnormal [Unknown]
  - Burning sensation [Unknown]
  - Asymptomatic COVID-19 [Recovering/Resolving]
  - Weight increased [Recovering/Resolving]
  - Fungal infection [Unknown]
  - Psoriasis [Unknown]
  - Arthralgia [Unknown]
  - Blood pressure increased [Unknown]
  - Hyperthyroidism [Recovering/Resolving]
  - Irritable bowel syndrome [Unknown]
  - Skin plaque [Unknown]
  - Pain in extremity [Unknown]
  - Spinal pain [Unknown]
  - Polycystic ovaries [Unknown]
  - Glucose tolerance impaired [Recovering/Resolving]
  - Hepatic steatosis [Recovering/Resolving]
  - Visual impairment [Unknown]
  - Discomfort [Unknown]
  - Rhinitis [Unknown]
  - Illness [Recovering/Resolving]
  - Malaise [Recovered/Resolved]
  - Skin odour abnormal [Unknown]
  - Product availability issue [Unknown]
  - Thyroid function test abnormal [Unknown]
  - C-reactive protein increased [Unknown]
  - Oropharyngeal plaque [Unknown]
  - Cough [Unknown]
  - Pain [Unknown]
  - Infection [Unknown]

NARRATIVE: CASE EVENT DATE: 202009
